FAERS Safety Report 9665334 (Version 1)
Quarter: 2013Q4

REPORT INFORMATION
  Report Type: Spontaneous
  Country: GB (occurrence: GB)
  Receive Date: 20131101
  Receipt Date: 20131101
  Transmission Date: 20140711
  Serious: Yes (Other)
  Sender: FDA-Public Use
  Company Number: GB-ROCHE-1293977

PATIENT
  Sex: 0

DRUGS (12)
  1. ERIVEDGE [Suspect]
     Indication: BASAL CELL CARCINOMA
     Route: 048
     Dates: start: 201308, end: 20130930
  2. ZOMORPH [Concomitant]
     Indication: ANALGESIC THERAPY
  3. AMLODIPINE [Concomitant]
  4. ASPIRIN [Concomitant]
  5. DIAZEPAM [Concomitant]
     Route: 065
  6. EZETIMIBE [Concomitant]
  7. FUROSEMIDE [Concomitant]
  8. PARACETAMOL [Concomitant]
  9. SALBUTAMOL [Concomitant]
  10. SERETIDE [Concomitant]
  11. TIOTROPIUM [Concomitant]
  12. TEMAZEPAM [Concomitant]

REACTIONS (1)
  - Neoplasm progression [Not Recovered/Not Resolved]
